FAERS Safety Report 24643658 (Version 1)
Quarter: 2024Q4

REPORT INFORMATION
  Report Type: Report from Study
  Country: CN (occurrence: CN)
  Receive Date: 20241120
  Receipt Date: 20241120
  Transmission Date: 20250115
  Serious: Yes (Hospitalization)
  Sender: ABBVIE
  Company Number: CN-IMMUNOGEN, INC.-CN-IMGN-24-00610

PATIENT
  Age: 64 Year
  Sex: Female
  Weight: 64 kg

DRUGS (6)
  1. MIRVETUXIMAB SORAVTANSINE [Suspect]
     Active Substance: MIRVETUXIMAB SORAVTANSINE
     Indication: Ovarian cancer
     Dosage: 6 MILLIGRAM/KILOGRAM, 3W
     Route: 042
     Dates: start: 20240325, end: 20240416
  2. MIRVETUXIMAB SORAVTANSINE [Suspect]
     Active Substance: MIRVETUXIMAB SORAVTANSINE
     Indication: Ovarian cancer
     Dosage: 5 MILLIGRAM/KILOGRAM, 3W, PROTEIN CONCENTRATION IS 5.0 MG/ML, 20 ML/BOTTLE
     Route: 042
     Dates: start: 20240523, end: 20240715
  3. SODIUM HYALURONATE [Concomitant]
     Active Substance: HYALURONATE SODIUM
     Indication: Eye disorder prophylaxis
     Dosage: 1 DROP, 6 TIMES DAILY
     Route: 050
     Dates: start: 20240705, end: 20240709
  4. SODIUM HYALURONATE [Concomitant]
     Active Substance: HYALURONATE SODIUM
     Indication: Eye disorder prophylaxis
     Dosage: 1 DROP, QID
     Route: 050
     Dates: start: 20240710, end: 20240713
  5. FLUOROMETHOLONE ACETATE [Concomitant]
     Active Substance: FLUOROMETHOLONE ACETATE
     Indication: Eye disorder prophylaxis
     Dosage: 1 DROP, TID
     Route: 050
     Dates: start: 20240705, end: 20240709
  6. FLUOROMETHOLONE ACETATE [Concomitant]
     Active Substance: FLUOROMETHOLONE ACETATE
     Indication: Eye disorder prophylaxis
     Dosage: 1 DROP, QID
     Route: 050
     Dates: start: 20240710

REACTIONS (1)
  - Ascites [Recovered/Resolved]

NARRATIVE: CASE EVENT DATE: 20240725
